FAERS Safety Report 5317950-4 (Version None)
Quarter: 2007Q2

REPORT INFORMATION
  Report Type: 
  Country: None (occurrence: None)
  Receive Date: 20070504
  Receipt Date: 20070504
  Transmission Date: 20071010
  Serious: Yes (Hospitalization)
  Sender: FDA-Public Use
  Company Number: None

PATIENT
  Age: 75 Year
  Sex: Male
  Weight: 62.5964 kg

DRUGS (1)
  1. WARFARIN SODIUM [Suspect]
     Indication: ATRIAL FLUTTER
     Dosage: 2.5 MG MWF, 1.25 MG ALL OTHER DAYS PO
     Route: 048
     Dates: start: 20050805, end: 20070322

REACTIONS (1)
  - GASTROINTESTINAL HAEMORRHAGE [None]
